FAERS Safety Report 6440907-7 (Version None)
Quarter: 2009Q4

REPORT INFORMATION
  Report Type: 
  Country: None (occurrence: None)
  Receive Date: 20091116
  Receipt Date: 20091111
  Transmission Date: 20100525
  Serious: Yes (Other)
  Sender: FDA-Public Use
  Company Number: ES-BRISTOL-MYERS SQUIBB COMPANY-14851968

PATIENT
  Age: 46 Year
  Sex: Female

DRUGS (5)
  1. ORENCIA [Suspect]
     Indication: POLYARTHRITIS
     Dosage: TOTAL NO OF ADMINISTRATIONS: 7
     Dates: start: 20090601
  2. LEFLUNOMIDE [Suspect]
  3. PREDNISONE [Concomitant]
  4. CALCIUM [Concomitant]
  5. IRON [Concomitant]

REACTIONS (2)
  - FEEDING DISORDER [None]
  - PHARYNGEAL ULCERATION [None]
